FAERS Safety Report 7189983-7 (Version None)
Quarter: 2010Q4

REPORT INFORMATION
  Report Type: 
  Country: None (occurrence: None)
  Receive Date: 20101223
  Receipt Date: 20101214
  Transmission Date: 20110411
  Serious: Yes (Hospitalization)
  Sender: FDA-Public Use
  Company Number: FR-JNJFOC-20101205338

PATIENT
  Age: 68 Year
  Sex: Female

DRUGS (16)
  1. TAVANIC [Suspect]
     Indication: INFECTION PROPHYLAXIS
     Route: 048
     Dates: start: 20100312, end: 20100326
  2. FUCIDINE NOS [Concomitant]
     Route: 065
  3. ESOMEPRAZOLE [Concomitant]
     Route: 065
  4. AVLOCARDYL [Concomitant]
     Route: 065
  5. ALLOPURINOL [Concomitant]
     Route: 065
  6. LEVOTHYROX [Concomitant]
     Route: 065
  7. ATHYMIL [Concomitant]
     Route: 065
  8. ACTONEL [Concomitant]
     Route: 065
  9. CACIT D3 [Concomitant]
     Route: 065
  10. IMOVANE [Concomitant]
     Route: 065
  11. AERIUS [Concomitant]
     Route: 065
  12. VITAMIN B1 AND B6 [Concomitant]
     Route: 065
  13. ARIXTRA [Concomitant]
     Route: 065
  14. FORLAX [Concomitant]
     Route: 065
  15. SPECIAFOLDINE [Concomitant]
     Route: 065
  16. MOTILIUM [Concomitant]
     Route: 065

REACTIONS (6)
  - ANAEMIA MACROCYTIC [None]
  - CONFUSIONAL STATE [None]
  - DIARRHOEA [None]
  - GASTROINTESTINAL DISORDER [None]
  - HYPOCALCAEMIA [None]
  - VOMITING [None]
